FAERS Safety Report 4284599-4 (Version None)
Quarter: 2004Q1

REPORT INFORMATION
  Report Type: 
  Country: None (occurrence: None)
  Receive Date: 20040130
  Receipt Date: 20040122
  Transmission Date: 20041129
  Serious: Yes (Hospitalization)
  Sender: FDA-Public Use
  Company Number: 200410260FR

PATIENT
  Age: 70 Year
  Sex: Male

DRUGS (2)
  1. FUROSEMIDE [Suspect]
     Dosage: 30 MG/DAY PO
     Route: 048
     Dates: end: 20030327
  2. FUROSEMIDE [Suspect]
     Dosage: 30 MG/DAY PO
     Route: 048
     Dates: start: 20030327, end: 20040105

REACTIONS (1)
  - ECZEMA [None]
